FAERS Safety Report 10712776 (Version 1)
Quarter: 2015Q1

REPORT INFORMATION
  Report Type: Spontaneous
  Country: NO (occurrence: None)
  Receive Date: 20150113
  Receipt Date: 20150113
  Transmission Date: 20150721
  Serious: Yes (Other)
  Sender: FDA-Public Use
  Company Number: BD-2014-0156

PATIENT
  Age: 25 Year
  Sex: Female
  Weight: 56 kg

DRUGS (2)
  1. METOCLOPRAMIDE (METOCLOPRAMIDE) UNKNOWN [Suspect]
     Active Substance: METOCLOPRAMIDE
     Indication: NAUSEA
     Dosage: 10 MG , UNK , INTRAMUSCULAR
     Route: 030
  2. DIPHENHYDRAMINE (DIPHENHYDRAMINE) [Suspect]
     Active Substance: DIPHENHYDRAMINE
     Dosage: 25 MG, UNK , INTRAMUSCULAR
     Route: 030

REACTIONS (36)
  - Dysphagia [None]
  - Nightmare [None]
  - Abdominal pain upper [None]
  - Mastication disorder [None]
  - Tic [None]
  - Tremor [None]
  - Anxiety [None]
  - Dyskinesia [None]
  - Dyspnoea [None]
  - Chills [None]
  - Panic attack [None]
  - Palpitations [None]
  - Hyperhidrosis [None]
  - Fatigue [None]
  - Asthenia [None]
  - Muscle spasms [None]
  - Tongue spasm [None]
  - Yellow skin [None]
  - Dizziness [None]
  - Suicidal ideation [None]
  - Speech disorder [None]
  - Ocular icterus [None]
  - Mental impairment [None]
  - Masked facies [None]
  - Derealisation [None]
  - Muscle twitching [None]
  - Urinary incontinence [None]
  - Confusional state [None]
  - Depression [None]
  - Vomiting [None]
  - Extrapyramidal disorder [None]
  - Abdominal pain [None]
  - Tardive dyskinesia [None]
  - Headache [None]
  - Nausea [None]
  - Feeling abnormal [None]
